FAERS Safety Report 19221703 (Version 1)
Quarter: 2021Q2

REPORT INFORMATION
  Report Type: Spontaneous
  Country: US (occurrence: US)
  Receive Date: 20210506
  Receipt Date: 20210506
  Transmission Date: 20210717
  Serious: No
  Sender: FDA-Public Use
  Company Number: US-ASTRAZENECA-2021A324490

PATIENT
  Sex: Male
  Weight: 106.6 kg

DRUGS (2)
  1. BYDUREON BCISE [Suspect]
     Active Substance: EXENATIDE
     Indication: TYPE 2 DIABETES MELLITUS
     Route: 058
     Dates: start: 2021
  2. BYETTA [Suspect]
     Active Substance: EXENATIDE
     Indication: TYPE 2 DIABETES MELLITUS
     Dosage: 10 TWO TIMES A DAY
     Route: 058

REACTIONS (5)
  - Injection site pain [Unknown]
  - Product use issue [Unknown]
  - Injection site mass [Recovering/Resolving]
  - Wrong technique in device usage process [Unknown]
  - Blood glucose increased [Unknown]
